FAERS Safety Report 4783388-1 (Version None)
Quarter: 2005Q3

REPORT INFORMATION
  Report Type: 
  Country: None (occurrence: None)
  Receive Date: 20050929
  Receipt Date: 20050726
  Transmission Date: 20060218
  Serious: Yes (Hospitalization, Disabling)
  Sender: FDA-Public Use
  Company Number: US-MERCK-0507USA04258

PATIENT
  Age: 62 Year
  Sex: Female
  Weight: 63 kg

DRUGS (2)
  1. VIOXX [Suspect]
     Indication: NECK INJURY
     Route: 048
     Dates: start: 20040805
  2. VIOXX [Suspect]
     Indication: LIMB INJURY
     Route: 048
     Dates: start: 20040805

REACTIONS (6)
  - CEREBROVASCULAR ACCIDENT [None]
  - DYSGRAPHIA [None]
  - MEMORY IMPAIRMENT [None]
  - MYOCARDIAL INFARCTION [None]
  - NECK INJURY [None]
  - THROMBOSIS [None]
